FAERS Safety Report 23963011 (Version 1)
Quarter: 2024Q2

REPORT INFORMATION
  Report Type: Spontaneous
  Country: US (occurrence: US)
  Receive Date: 20240611
  Receipt Date: 20240611
  Transmission Date: 20240716
  Serious: No
  Sender: FDA-Public Use
  Company Number: US-GALDERMA-US2024009363

PATIENT

DRUGS (5)
  1. PROACTIV MD ADAPALENE ACNE TREATMENT [Suspect]
     Active Substance: ADAPALENE
     Indication: Skin hyperpigmentation
     Dosage: 1 DOSAGE FORM, DAILY
     Route: 061
     Dates: start: 202304, end: 202312
  2. Proactiv MD Ultra Gentle Cleanser [Concomitant]
     Indication: Skin hyperpigmentation
     Dosage: 1 DOSAGE FORM, DAILY
     Route: 061
     Dates: start: 202304, end: 202312
  3. COSMETICS [Concomitant]
     Active Substance: COSMETICS
     Indication: Skin hyperpigmentation
     Dosage: 1 DOSAGE FORM, DAILY
     Route: 061
     Dates: start: 202304, end: 202312
  4. COSMETICS [Concomitant]
     Active Substance: COSMETICS
     Indication: Skin hyperpigmentation
     Dosage: 1 DOSAGE FORM, DAILY
     Route: 061
     Dates: start: 202304, end: 202312
  5. COSMETICS [Concomitant]
     Active Substance: COSMETICS
     Indication: Skin hyperpigmentation
     Dosage: 1 DOSAGE FORM, DAILY
     Route: 061
     Dates: start: 202304, end: 202312

REACTIONS (5)
  - Skin irritation [Recovering/Resolving]
  - Sensitive skin [Recovering/Resolving]
  - Acne [Recovering/Resolving]
  - Hypersensitivity [Recovering/Resolving]
  - Product use in unapproved indication [Recovered/Resolved]

NARRATIVE: CASE EVENT DATE: 20230401
